FAERS Safety Report 20317373 (Version 4)
Quarter: 2025Q1

REPORT INFORMATION
  Report Type: Report from Study
  Country: CA (occurrence: CA)
  Receive Date: 20220110
  Receipt Date: 20250326
  Transmission Date: 20250409
  Serious: Yes (Other)
  Sender: TAKEDA
  Company Number: CA-TAKEDA-CA202023873

PATIENT
  Age: 59 Year
  Sex: Female

DRUGS (22)
  1. HUMAN IMMUNOGLOBULIN G [Suspect]
     Active Substance: HUMAN IMMUNOGLOBULIN G
     Indication: Secondary immunodeficiency
     Dosage: 6 GRAM, 1/WEEK
     Dates: start: 20200509
  2. HUMAN IMMUNOGLOBULIN G [Suspect]
     Active Substance: HUMAN IMMUNOGLOBULIN G
     Dosage: 6 GRAM, 1/WEEK
  3. HUMAN IMMUNOGLOBULIN G [Suspect]
     Active Substance: HUMAN IMMUNOGLOBULIN G
     Dosage: 7 GRAM, 1/WEEK
  4. GABAPENTIN [Suspect]
     Active Substance: GABAPENTIN
     Indication: Product used for unknown indication
  5. AZITHROMYCIN [Concomitant]
     Active Substance: AZITHROMYCIN
     Indication: Asthma
     Dosage: 2 DOSAGE FORM, QD
  6. Caltrate select [Concomitant]
     Indication: Blood electrolytes abnormal
     Dosage: 2 DOSAGE FORM, QD
  7. Caltrate select [Concomitant]
     Indication: Nutritional supplementation
  8. MOMETASONE [Concomitant]
     Active Substance: MOMETASONE
     Indication: Product used for unknown indication
     Dosage: UNK, QD
  9. DUKORAL [Concomitant]
     Active Substance: CHOLERA VACCINE
     Indication: Antasthmatic drug level
     Dosage: UNK UNK, 1/WEEK
  10. ALBUTEROL [Concomitant]
     Active Substance: ALBUTEROL
     Indication: Nausea
     Dosage: UNK, Q4HR
  11. METOCLOPRAMIDE [Concomitant]
     Active Substance: METOCLOPRAMIDE
     Indication: Nausea
     Dosage: 2 DOSAGE FORM, BID
  12. CELECOXIB [Concomitant]
     Active Substance: CELECOXIB
     Indication: Arthritis
     Dosage: 1 DOSAGE FORM, QD
  13. ACETAMINOPHEN\TRAMADOL HYDROCHLORIDE [Concomitant]
     Active Substance: ACETAMINOPHEN\TRAMADOL HYDROCHLORIDE
     Indication: Analgesic therapy
     Dosage: 1 DOSAGE FORM, TID
  14. MONTELUKAST SODIUM [Concomitant]
     Active Substance: MONTELUKAST SODIUM
     Indication: Antasthmatic drug level above therapeutic
     Dosage: 1 DOSAGE FORM, QD
  15. PREDNISONE [Concomitant]
     Active Substance: PREDNISONE
     Indication: Asthma prophylaxis
  16. HYDROCHLOROTHIAZIDE [Concomitant]
     Active Substance: HYDROCHLOROTHIAZIDE
     Indication: Diuretic therapy
     Dosage: 2 DOSAGE FORM, QD
  17. CYCLOBENZAPRINE [Concomitant]
     Active Substance: CYCLOBENZAPRINE
     Indication: Muscle relaxant therapy
     Dosage: 1 DOSAGE FORM, QD
  18. BILASTINE [Concomitant]
     Active Substance: BILASTINE
     Indication: Antiallergic therapy
     Dosage: 1 DOSAGE FORM, QD
  19. BACLOFEN [Concomitant]
     Active Substance: BACLOFEN
     Indication: Muscle relaxant therapy
     Dosage: 1 DOSAGE FORM, QD
  20. METOCLOPRAMIDE [Concomitant]
     Active Substance: METOCLOPRAMIDE
     Indication: Nausea
     Dosage: 5 MILLIGRAM, BID
  21. MOMETASONE FUROATE [Concomitant]
     Active Substance: MOMETASONE FUROATE
     Indication: Nasal disorder
     Dosage: 50 MILLIGRAM, BID
  22. BILASTINE [Concomitant]
     Active Substance: BILASTINE
     Indication: Antiallergic therapy

REACTIONS (10)
  - Lower respiratory tract infection [Not Recovered/Not Resolved]
  - Incorrect dose administered [Unknown]
  - Immunoglobulins decreased [Recovering/Resolving]
  - Blood immunoglobulin G decreased [Recovered/Resolved]
  - Swelling face [Unknown]
  - Lethargy [Unknown]
  - Pain in extremity [Unknown]
  - Arthralgia [Recovered/Resolved]
  - Headache [Unknown]
  - Fatigue [Not Recovered/Not Resolved]

NARRATIVE: CASE EVENT DATE: 20200823
